FAERS Safety Report 24006057 (Version 1)
Quarter: 2024Q2

REPORT INFORMATION
  Report Type: Report from Study
  Country: CA (occurrence: CA)
  Receive Date: 20240624
  Receipt Date: 20240624
  Transmission Date: 20240716
  Serious: Yes (Death)
  Sender: FDA-Public Use
  Company Number: CA-BAYER-2024A090546

PATIENT
  Age: 73 Year
  Sex: Female

DRUGS (17)
  1. ADEMPAS [Suspect]
     Active Substance: RIOCIGUAT
     Indication: Pulmonary hypertension
     Dosage: 2.5 MG, TID
     Route: 048
     Dates: start: 20181029, end: 20240610
  2. BUPROPION [Concomitant]
     Active Substance: BUPROPION
  3. CITALOPRAM [Concomitant]
     Active Substance: CITALOPRAM\CITALOPRAM HYDROBROMIDE
  4. DIVALPROEX SODIUM [Concomitant]
     Active Substance: DIVALPROEX SODIUM
  5. DOCUSATE SODIUM [Concomitant]
     Active Substance: DOCUSATE SODIUM
  6. FUROSEMIDE [Concomitant]
     Active Substance: FUROSEMIDE
  7. LORAZEPAM [Concomitant]
     Active Substance: LORAZEPAM
  8. MIDODRINE [Concomitant]
     Active Substance: MIDODRINE
  9. OLANZAPINE [Concomitant]
     Active Substance: OLANZAPINE
  10. RABEPRAZOLE [Concomitant]
     Active Substance: RABEPRAZOLE
  11. RISPERIDONE [Concomitant]
     Active Substance: RISPERIDONE
  12. RIVAROXABAN [Concomitant]
     Active Substance: RIVAROXABAN
  13. SENNOSIDES [Concomitant]
     Active Substance: SENNOSIDES
  14. SPIRONOLACTONE [Concomitant]
     Active Substance: SPIRONOLACTONE
  15. ZOPICLONE [Concomitant]
     Active Substance: ZOPICLONE
  16. GABAPENTIN [Concomitant]
     Active Substance: GABAPENTIN
  17. OPSUMIT [Concomitant]
     Active Substance: MACITENTAN

REACTIONS (1)
  - Death [Fatal]

NARRATIVE: CASE EVENT DATE: 20240610
